FAERS Safety Report 21404220 (Version 1)
Quarter: 2022Q4

REPORT INFORMATION
  Report Type: Spontaneous
  Country: US (occurrence: US)
  Receive Date: 20221003
  Receipt Date: 20221003
  Transmission Date: 20230113
  Serious: No
  Sender: FDA-Public Use
  Company Number: US-ALKERMES INC.-ALK-2022-004688

PATIENT
  Age: 29 Year
  Sex: Female

DRUGS (5)
  1. ARISTADA [Suspect]
     Active Substance: ARIPIPRAZOLE LAUROXIL
     Indication: Schizophrenia
     Dosage: 1064 MILLIGRAM, UNKNOWN FREQUENCY
     Route: 030
  2. OLANZAPINE [Concomitant]
     Active Substance: OLANZAPINE
     Indication: Product used for unknown indication
     Dosage: UNK
  3. ZYPREXA RELPREVV [Concomitant]
     Active Substance: OLANZAPINE PAMOATE
     Indication: Product used for unknown indication
     Dosage: UNK
  4. AMOXICILLIN\CLAVULANIC ACID [Concomitant]
     Active Substance: AMOXICILLIN\CLAVULANIC ACID
     Indication: Product used for unknown indication
     Dosage: UNK
     Route: 030
  5. MOTRIN [Concomitant]
     Active Substance: IBUPROFEN
     Indication: Product used for unknown indication
     Dosage: UNK

REACTIONS (2)
  - Device issue [Recovered/Resolved]
  - Wrong device used [None]

NARRATIVE: CASE EVENT DATE: 20220926
